FAERS Safety Report 4869251-6 (Version None)
Quarter: 2005Q4

REPORT INFORMATION
  Report Type: 
  Country: None (occurrence: None)
  Receive Date: 20051230
  Receipt Date: 20051215
  Transmission Date: 20060501
  Serious: Yes (Life-Threatening, Hospitalization)
  Sender: FDA-Public Use
  Company Number: US-ROCHE-428871

PATIENT
  Age: 45 Year
  Sex: Male
  Weight: 101 kg

DRUGS (14)
  1. NAPROSYN [Suspect]
     Route: 048
     Dates: start: 20051123, end: 20051123
  2. NAPROSYN [Suspect]
     Route: 048
     Dates: start: 20000111, end: 20051124
  3. NAPROSYN [Suspect]
     Route: 048
     Dates: start: 20051129
  4. ELAVIL [Suspect]
     Indication: DEPRESSION
     Route: 048
     Dates: start: 20051123, end: 20051123
  5. ELAVIL [Suspect]
     Dosage: TAKEN AT BEDTIME
     Route: 048
     Dates: start: 20000301, end: 20051124
  6. PEG-INTRON [Suspect]
     Route: 058
     Dates: start: 20041012, end: 20050913
  7. REBETOL [Suspect]
     Route: 048
     Dates: start: 20041012, end: 20050913
  8. GLIPIZIDE [Concomitant]
     Indication: DIABETES MELLITUS
     Dates: start: 20041010
  9. CAPTOPRIL [Concomitant]
     Indication: HYPERTENSION
     Dates: start: 20011127
  10. ZOLOFT [Concomitant]
     Indication: DEPRESSION
     Dates: start: 20041004
  11. LIPITOR [Concomitant]
     Dosage: TAKEN AT BEDTIME
     Dates: start: 20040804
  12. VICODIN [Concomitant]
     Dates: start: 20000111, end: 20051124
  13. PERCOCET [Concomitant]
  14. GLUCOPHAGE [Concomitant]
     Indication: DIABETES MELLITUS
     Dates: start: 20020111

REACTIONS (8)
  - DRUG SCREEN POSITIVE [None]
  - ELECTROCARDIOGRAM QRS COMPLEX PROLONGED [None]
  - ENCEPHALOPATHY [None]
  - HYPOXIA [None]
  - LOSS OF CONSCIOUSNESS [None]
  - MULTIPLE DRUG OVERDOSE [None]
  - OVERDOSE [None]
  - PNEUMONIA ASPIRATION [None]
